FAERS Safety Report 10655824 (Version 3)
Quarter: 2015Q1

REPORT INFORMATION
  Report Type: Spontaneous
  Country: US (occurrence: US)
  Receive Date: 20141216
  Receipt Date: 20150121
  Transmission Date: 20150720
  Serious: Yes (Death, Hospitalization, Disabling, Other)
  Sender: FDA-Public Use
  Company Number: US-009507513-1412USA005721

PATIENT
  Age: 51 Year
  Sex: Male
  Weight: 84.35 kg

DRUGS (8)
  1. FENTANYL. [Concomitant]
     Active Substance: FENTANYL
  2. COLACE [Concomitant]
     Active Substance: DOCUSATE SODIUM
  3. SENNA [Concomitant]
     Active Substance: SENNA LEAF\SENNOSIDES\SENNOSIDES A AND B
  4. FOLIC ACID. [Concomitant]
     Active Substance: FOLIC ACID
  5. KEYTRUDA [Suspect]
     Active Substance: PEMBROLIZUMAB
     Indication: METASTATIC MALIGNANT MELANOMA
     Dosage: 170 MG, QD
     Route: 042
     Dates: start: 20141003, end: 20141003
  6. HEXADROL [Concomitant]
     Active Substance: DEXAMETHASONE
  7. IRON (UNSPECIFIED) [Concomitant]
     Active Substance: IRON
     Route: 048
  8. OXYCODONE [Concomitant]
     Active Substance: OXYCODONE
     Dosage: 10-20 MG

REACTIONS (5)
  - General physical health deterioration [Fatal]
  - Hypercalcaemia of malignancy [Fatal]
  - Pain [Fatal]
  - Metastatic malignant melanoma [Fatal]
  - Iron deficiency anaemia [Fatal]

NARRATIVE: CASE EVENT DATE: 201410
